FAERS Safety Report 4847262-4 (Version None)
Quarter: 2005Q4

REPORT INFORMATION
  Report Type: 
  Country: None (occurrence: None)
  Receive Date: 20051207
  Receipt Date: 20051201
  Transmission Date: 20060501
  Serious: Yes (Hospitalization)
  Sender: FDA-Public Use
  Company Number: GXKR2005BR01019

PATIENT
  Age: 2 Year
  Sex: Male

DRUGS (5)
  1. AMOXICILLIN AND CLAVULANATE POTASSIUM [Suspect]
     Indication: PNEUMONIA
     Dosage: 5ML SEE DOSAGE TEXT
     Route: 048
     Dates: start: 20050415, end: 20050425
  2. ATROVENT [Concomitant]
     Route: 055
  3. SALINE [Concomitant]
  4. NOVALGINA [Concomitant]
  5. BEROTEC [Concomitant]

REACTIONS (4)
  - DRUG INEFFECTIVE [None]
  - PHARYNGITIS [None]
  - PYREXIA [None]
  - TONSILLITIS [None]
